FAERS Safety Report 23669432 (Version 1)
Quarter: 2024Q1

REPORT INFORMATION
  Report Type: Spontaneous
  Country: US (occurrence: US)
  Receive Date: 20240325
  Receipt Date: 20240325
  Transmission Date: 20240410
  Serious: No
  Sender: FDA-Public Use
  Company Number: US-PERRIGO-24US001352

PATIENT
  Age: 66 Year
  Sex: Male
  Weight: 81.633 kg

DRUGS (1)
  1. NASONEX [Suspect]
     Active Substance: MOMETASONE FUROATE
     Indication: Rhinorrhoea
     Dosage: 50 MCG IN EACH NOSTRIL, SINGLE
     Route: 045
     Dates: start: 20240126, end: 20240126

REACTIONS (5)
  - Nasal oedema [Recovering/Resolving]
  - Nasal congestion [Recovering/Resolving]
  - Rhinalgia [Recovering/Resolving]
  - Hypersensitivity [Recovering/Resolving]
  - Underdose [Unknown]

NARRATIVE: CASE EVENT DATE: 20240126
